FAERS Safety Report 7802035-5 (Version None)
Quarter: 2011Q4

REPORT INFORMATION
  Report Type: 
  Country: None (occurrence: None)
  Receive Date: 20111005
  Receipt Date: 20110926
  Transmission Date: 20120403
  Serious: Yes (Death, Other)
  Sender: FDA-Public Use
  Company Number: GB-ACCORD-010622

PATIENT
  Age: 44 Year
  Sex: Male

DRUGS (6)
  1. MYCOPHENOLATE MOFETIL [Suspect]
     Indication: IMMUNOSUPPRESSION
     Dates: start: 20020101, end: 20100301
  2. TACROLIMUS [Suspect]
     Indication: IMMUNOSUPPRESSION
     Dates: start: 20020101
  3. DACLIZUMAB (DACLIZUMAB) [Suspect]
     Indication: IMMUNOSUPPRESSION
     Dosage: 2.00-MG/KG
  4. METHYLPREDNISOLONE [Suspect]
     Indication: IMMUNOSUPPRESSION
     Dates: start: 20020101
  5. PREDNISOLONE [Suspect]
     Indication: IMMUNOSUPPRESSION
  6. RITUXIMAB (RITUXIMAB) [Suspect]
     Indication: IMMUNOSUPPRESSION

REACTIONS (1)
  - ANGIOSARCOMA [None]
